FAERS Safety Report 12070151 (Version 1)
Quarter: 2016Q1

REPORT INFORMATION
  Report Type: Report from Study
  Country: US (occurrence: US)
  Receive Date: 20160211
  Receipt Date: 20160211
  Transmission Date: 20160526
  Serious: Yes (Other)
  Sender: FDA-Public Use
  Company Number: US-BAYER-2016-019882

PATIENT
  Age: 83 Year
  Sex: Male

DRUGS (1)
  1. XOFIGO [Suspect]
     Active Substance: RADIUM RA-223 DICHLORIDE
     Dosage: 101.90 UCI ONCE EVERY 28 DAYS
     Route: 042
     Dates: start: 20160108, end: 20160108

REACTIONS (1)
  - Oedema [None]

NARRATIVE: CASE EVENT DATE: 20160201
